FAERS Safety Report 24106269 (Version 1)
Quarter: 2024Q3

REPORT INFORMATION
  Report Type: Spontaneous
  Country: US (occurrence: US)
  Receive Date: 20240717
  Receipt Date: 20240717
  Transmission Date: 20241017
  Serious: No
  Sender: Phathom Pharmaceuticals
  Company Number: US-PHATHOM PHARMACEUTICALS INC.-2024PHT00212

PATIENT
  Sex: Female
  Weight: 78.925 kg

DRUGS (1)
  1. VOQUEZNA [Suspect]
     Active Substance: VONOPRAZAN FUMARATE
     Indication: Gastrooesophageal reflux disease
     Dosage: 20 MG, 1X/DAY IN THE EVENING
     Route: 048
     Dates: end: 20240410

REACTIONS (2)
  - Dyspnoea [Recovering/Resolving]
  - Diarrhoea [Recovering/Resolving]
